FAERS Safety Report 10682132 (Version 2)
Quarter: 2016Q2

REPORT INFORMATION
  Report Type: Spontaneous
  Country: KR (occurrence: KR)
  Receive Date: 20141230
  Receipt Date: 20160530
  Transmission Date: 20160815
  Serious: Yes (Death, Other)
  Sender: FDA-Public Use
  Company Number: KR-JNJFOC-20141212798

PATIENT
  Sex: Male

DRUGS (2)
  1. ABIRATERONE ACETATE [Suspect]
     Active Substance: ABIRATERONE ACETATE
     Indication: PROSTATE CANCER METASTATIC
     Dosage: 4X250 MG TABLETS
     Route: 048
  2. PREDNISOLONE. [Suspect]
     Active Substance: PREDNISOLONE
     Indication: PROSTATE CANCER METASTATIC
     Route: 065

REACTIONS (45)
  - Hypertransaminasaemia [Unknown]
  - Hypokalaemia [Unknown]
  - Aspartate aminotransferase increased [Unknown]
  - Poisoning [Unknown]
  - Oedema peripheral [Unknown]
  - Bone pain [Unknown]
  - Back pain [Unknown]
  - Nasopharyngitis [Unknown]
  - Arthralgia [Unknown]
  - Hyperglycaemia [Unknown]
  - Septic shock [Fatal]
  - Upper respiratory tract infection [Unknown]
  - Metastases to liver [Unknown]
  - Blood alkaline phosphatase increased [Unknown]
  - Toxicity to various agents [Unknown]
  - Constipation [Unknown]
  - Post procedural complication [Unknown]
  - Hepatotoxicity [Unknown]
  - Alanine aminotransferase increased [Unknown]
  - Anaemia [Unknown]
  - Abdominal discomfort [Unknown]
  - Dyspepsia [Unknown]
  - Abdominal distension [Unknown]
  - Nocturia [Unknown]
  - Pain in extremity [Unknown]
  - Cough [Unknown]
  - Disease progression [Fatal]
  - Pneumonia [Fatal]
  - Haematuria [Unknown]
  - Decreased appetite [Unknown]
  - Injury [Unknown]
  - Fluid retention [Unknown]
  - Hepatic function abnormal [Unknown]
  - Hypoaesthesia [Unknown]
  - Pleural effusion [Fatal]
  - Hypertension [Unknown]
  - Electrocardiogram QT prolonged [Unknown]
  - Vomiting [Unknown]
  - Cardiac disorder [Unknown]
  - Drug dose omission [Unknown]
  - Fatigue [Unknown]
  - Insomnia [Unknown]
  - Muscular weakness [Unknown]
  - Proteinuria [Unknown]
  - Ecchymosis [Unknown]
